FAERS Safety Report 14587465 (Version 1)
Quarter: 2018Q1

REPORT INFORMATION
  Report Type: Spontaneous
  Country: DK (occurrence: DK)
  Receive Date: 20180301
  Receipt Date: 20180301
  Transmission Date: 20180509
  Serious: Yes (Other)
  Sender: FDA-Public Use
  Company Number: PHHY2018DK031900

PATIENT
  Sex: Female

DRUGS (1)
  1. TEGRETOL [Suspect]
     Active Substance: CARBAMAZEPINE
     Indication: EPILEPSY
     Route: 065

REACTIONS (6)
  - Sleep disorder [Unknown]
  - Overweight [Unknown]
  - Hypokinesia [Unknown]
  - Dizziness [Unknown]
  - Monoplegia [Unknown]
  - Diplopia [Unknown]
